FAERS Safety Report 6973881-5 (Version None)
Quarter: 2010Q3

REPORT INFORMATION
  Report Type: 
  Country: None (occurrence: None)
  Receive Date: 20100909
  Receipt Date: 20100901
  Transmission Date: 20110219
  Serious: Yes (Other)
  Sender: FDA-Public Use
  Company Number: B0673792A

PATIENT
  Sex: Female

DRUGS (3)
  1. ALIFLUS [Suspect]
     Indication: PRODUCT USED FOR UNKNOWN INDICATION
     Route: 055
  2. AERIUS [Concomitant]
  3. AIRCORT [Concomitant]

REACTIONS (4)
  - BRONCHIAL DISORDER [None]
  - CHEST PAIN [None]
  - COUGH [None]
  - PYREXIA [None]
